FAERS Safety Report 8842284 (Version 1)
Quarter: 2012Q4

REPORT INFORMATION
  Report Type: 
  Country: US (occurrence: US)
  Receive Date: 20121016
  Receipt Date: 20121016
  Transmission Date: 20130627
  Serious: Yes (Other)
  Sender: FDA-Public Use
  Company Number: US-PFIZER INC-2012255090

PATIENT
  Age: 79 Year
  Sex: Female
  Weight: 83.9 kg

DRUGS (4)
  1. TIKOSYN [Suspect]
     Indication: ARRHYTHMIA
     Dosage: 0.25 mg,every 12 hours
     Dates: start: 20120715
  2. TIKOSYN [Suspect]
     Indication: ATRIAL FIBRILLATION
  3. SYNTHROID [Concomitant]
     Indication: THYROID DISORDER
     Dosage: 80mcg and 100mcg alternatively daily
  4. CUMADIN [Concomitant]
     Indication: ANTICOAGULANT THERAPY
     Dosage: 5 mg, daily
     Dates: start: 20120715

REACTIONS (3)
  - Atrial fibrillation [Recovered/Resolved]
  - Cystitis [Not Recovered/Not Resolved]
  - Dizziness [Not Recovered/Not Resolved]
